FAERS Safety Report 21336253 (Version 2)
Quarter: 2022Q3

REPORT INFORMATION
  Report Type: Spontaneous
  Country: US (occurrence: US)
  Receive Date: 20220915
  Receipt Date: 20220930
  Transmission Date: 20221027
  Serious: Yes (Hospitalization)
  Sender: FDA-Public Use
  Company Number: US-TEVA-2022-US-2071782

PATIENT
  Age: 40 Year
  Sex: Female

DRUGS (5)
  1. ALPRAZOLAM [Suspect]
     Active Substance: ALPRAZOLAM
     Indication: Bipolar disorder
     Route: 065
  2. DULOXETINE [Suspect]
     Active Substance: DULOXETINE
     Indication: Bipolar disorder
     Route: 065
  3. TRAMADOL [Suspect]
     Active Substance: TRAMADOL
     Indication: Sciatica
     Route: 065
  4. LITHIUM [Suspect]
     Active Substance: LITHIUM
     Indication: Bipolar disorder
     Route: 065
  5. LURASIDONE [Suspect]
     Active Substance: LURASIDONE
     Indication: Bipolar disorder
     Route: 065

REACTIONS (2)
  - Serotonin syndrome [Recovering/Resolving]
  - Toxic encephalopathy [Recovered/Resolved]
